FAERS Safety Report 7455146-0 (Version None)
Quarter: 2011Q1

REPORT INFORMATION
  Report Type: 
  Country: None (occurrence: None)
  Receive Date: 20110302
  Receipt Date: 20110121
  Transmission Date: 20110831
  Serious: No
  Sender: FDA-Public Use
  Company Number: 026065

PATIENT
  Sex: Female

DRUGS (1)
  1. CIMZIA [Suspect]
     Indication: CROHN'S DISEASE
     Dosage: (SUBCUTANEOUS)
     Route: 058
     Dates: start: 20101213

REACTIONS (1)
  - RASH GENERALISED [None]
